FAERS Safety Report 24257198 (Version 1)
Quarter: 2024Q3

REPORT INFORMATION
  Report Type: Spontaneous
  Country: GB (occurrence: GB)
  Receive Date: 20240828
  Receipt Date: 20240828
  Transmission Date: 20241016
  Serious: Yes (Disabling, Other)
  Sender: TEVA
  Company Number: GB-MHRA-TPP29188849C3858790YC1723830834725

PATIENT
  Age: 84 Year
  Sex: Female
  Weight: 62 kg

DRUGS (11)
  1. AMLODIPINE [Suspect]
     Active Substance: AMLODIPINE BESYLATE
     Dosage: MORNING
     Route: 065
     Dates: start: 20240509, end: 20240517
  2. VISUEVO [Concomitant]
     Indication: Ill-defined disorder
     Dosage: USE AS DIRECTED TO BOTH EYES, TPP YC - PLEASE RECLASSIFY
     Dates: start: 20240716
  3. ESOMEPRAZOLE [Concomitant]
     Active Substance: ESOMEPRAZOLE
     Indication: Ill-defined disorder
     Dosage: TPP YC - PLEASE RECLASSIFY
     Dates: start: 20231211
  4. ROSUVASTATIN [Concomitant]
     Active Substance: ROSUVASTATIN\ROSUVASTATIN CALCIUM
     Indication: Ill-defined disorder
     Dosage: AT NIGHT, TPP YC - PLEASE RECLASSIFY
     Dates: start: 20231211
  5. RANOLAZINE [Concomitant]
     Active Substance: RANOLAZINE
     Indication: Ill-defined disorder
     Dosage: TPP YC - PLEASE RECLASSIFY
     Dates: start: 20240610
  6. SYSTANE BALANCE [Concomitant]
     Active Substance: PROPYLENE GLYCOL
     Indication: Ill-defined disorder
     Dosage: USE AS DIRECTED TO BOTH EYES, TPP YC - PLEASE RECLASSIFY
     Dates: start: 20231211, end: 20240716
  7. NITROGLYCERIN [Concomitant]
     Active Substance: NITROGLYCERIN
     Indication: Ill-defined disorder
     Dosage: PUFF, TPP YC - PLEASE RECLASSIFY
     Dates: start: 20231211
  8. FEXOFENADINE [Concomitant]
     Active Substance: FEXOFENADINE HYDROCHLORIDE
     Indication: Ill-defined disorder
     Dosage: TPP YC - PLEASE RECLASSIFY
     Dates: start: 20231211
  9. RANEXA [Concomitant]
     Active Substance: RANOLAZINE
     Dosage: TPP YC - PLEASE RECLASSIFY
     Dates: start: 20240802
  10. POTASSIUM BICARBONATE\SODIUM ALGINATE [Concomitant]
     Active Substance: POTASSIUM BICARBONATE\SODIUM ALGINATE
     Indication: Ill-defined disorder
     Dosage: 5ML - 10ML 4 TIMES/DAY WHEN REQUIRED- ANISEED, TPP YC - PLEASE RECLASSIFY
     Dates: start: 20231211
  11. ASPIRIN [Concomitant]
     Active Substance: ASPIRIN
     Indication: Ill-defined disorder
     Dosage: TPP YC - PLEASE RECLASSIFY
     Dates: start: 20231211

REACTIONS (1)
  - Joint swelling [Recovered/Resolved]
